FAERS Safety Report 4344916-3 (Version None)
Quarter: 2004Q2

REPORT INFORMATION
  Report Type: 
  Country: None (occurrence: None)
  Receive Date: 20040420
  Receipt Date: 20040408
  Transmission Date: 20050107
  Serious: Yes (Disabling)
  Sender: FDA-Public Use
  Company Number: 2004024275

PATIENT
  Age: 50 Year
  Sex: Male
  Weight: 82.7 kg

DRUGS (8)
  1. ATORVASTATIN (ATORVASTATIN) [Suspect]
     Indication: HYPERCHOLESTEROLAEMIA
     Dosage: 10 (DAILY), ORAL
     Route: 048
  2. SIMVASTATIN [Concomitant]
     Indication: HYPERCHOLESTEROLAEMIA
     Dosage: 10 (DAILY), ORAL
     Route: 048
  3. HYOSCINE HBR HYT [Concomitant]
  4. PARAMOL-118 (DIHYDROCODEINE BITARTRATE, PARACETAMOL) [Concomitant]
  5. SOTALOL HCL [Concomitant]
  6. MOMETASONE FUROATE [Concomitant]
  7. BETHAHISTINE HYDROCHLORIDE (BETAHISTINE HYDROCHLORIDE) [Concomitant]
  8. ESOMEPRAZOLE (ESOMEPRAZOLE [Concomitant]

REACTIONS (1)
  - PROCTALGIA FUGAX [None]
